FAERS Safety Report 4971755-2 (Version None)
Quarter: 2006Q2

REPORT INFORMATION
  Report Type: 
  Country: None (occurrence: None)
  Receive Date: 20060413
  Receipt Date: 20050926
  Transmission Date: 20061013
  Serious: Yes (Hospitalization)
  Sender: FDA-Public Use
  Company Number: JP-AVENTIS-200512756JP

PATIENT
  Age: 70 Year
  Sex: Male

DRUGS (1)
  1. LASIX [Suspect]

REACTIONS (1)
  - PEMPHIGOID [None]
